FAERS Safety Report 10448976 (Version 2)
Quarter: 2014Q3

REPORT INFORMATION
  Report Type: Spontaneous
  Country: US (occurrence: US)
  Receive Date: 20140912
  Receipt Date: 20140912
  Transmission Date: 20150326
  Serious: Yes (Other)
  Sender: FDA-Public Use
  Company Number: US-AUROBINDO-AUR-APU-2014-07991

PATIENT
  Age: 79 Year
  Sex: Male

DRUGS (23)
  1. LEVOFLOXACIN [Concomitant]
     Active Substance: LEVOFLOXACIN
     Indication: CHRONIC OBSTRUCTIVE PULMONARY DISEASE
     Dosage: 1 DF, DAILY
     Dates: start: 20080701
  2. SPIRIVA [Concomitant]
     Active Substance: TIOTROPIUM BROMIDE MONOHYDRATE
     Indication: CHRONIC OBSTRUCTIVE PULMONARY DISEASE
     Dosage: 1 DF, DAILY
     Dates: start: 20080701
  3. SINGULAIR [Concomitant]
     Active Substance: MONTELUKAST SODIUM
     Indication: CHRONIC OBSTRUCTIVE PULMONARY DISEASE
     Dosage: 1 DF, DAILY
     Route: 065
     Dates: start: 20080701
  4. ALBUTEROL SULFATE. [Concomitant]
     Active Substance: ALBUTEROL SULFATE
     Indication: CHRONIC OBSTRUCTIVE PULMONARY DISEASE
     Dosage: 1- 2 A DAY
     Route: 065
     Dates: start: 20080701
  5. LEVOFLOXACIN [Concomitant]
     Active Substance: LEVOFLOXACIN
     Indication: COUGH
  6. LEVOFLOXACIN [Concomitant]
     Active Substance: LEVOFLOXACIN
     Indication: NASAL CONGESTION
  7. SEROQUEL [Concomitant]
     Active Substance: QUETIAPINE FUMARATE
     Indication: SLEEP DISORDER THERAPY
     Dosage: 1/4 TABLET BEDTIME
     Route: 065
     Dates: start: 20080701
  8. SELSUN BLUE [Concomitant]
     Active Substance: SELENIUM SULFIDE
     Indication: ECZEMA
     Dosage: 1XWEEK
     Route: 065
     Dates: start: 20080701
  9. PREDNISONE. [Concomitant]
     Active Substance: PREDNISONE
     Indication: NASAL CONGESTION
  10. HYDROCHLOROTHIAZIDE. [Concomitant]
     Active Substance: HYDROCHLOROTHIAZIDE
     Indication: OEDEMA
     Dosage: 1 DF, ONCE A DAY
     Route: 065
     Dates: start: 20080701
  11. NAPROXEN SODIUM. [Concomitant]
     Active Substance: NAPROXEN SODIUM
     Indication: PAIN
     Dosage: 220 MG, AS NECESSARY
     Route: 065
     Dates: start: 20080701
  12. MULTIVITAMIN                       /00097801/ [Concomitant]
     Active Substance: VITAMINS
     Indication: GASTRECTOMY
     Dosage: 1 DF, DAILY
     Route: 065
     Dates: start: 20080701
  13. OXYGEN. [Concomitant]
     Active Substance: OXYGEN
     Indication: CHRONIC OBSTRUCTIVE PULMONARY DISEASE
     Dosage: 24/7
     Route: 065
     Dates: start: 20080701
  14. PREDNISONE. [Concomitant]
     Active Substance: PREDNISONE
     Indication: COUGH
  15. ASPIRIN. [Concomitant]
     Active Substance: ASPIRIN
     Indication: PRODUCT USED FOR UNKNOWN INDICATION
     Dosage: 1X1 TIMES A DAY
     Route: 065
     Dates: start: 20080701
  16. LIBRIUM [Concomitant]
     Active Substance: CHLORDIAZEPOXIDE HYDROCHLORIDE
     Indication: ANXIETY
     Dosage: 2 DF, TWO TIMES A DAY
     Route: 065
     Dates: start: 20080701
  17. KETOCONAZOLE. [Concomitant]
     Active Substance: KETOCONAZOLE
     Indication: ECZEMA
     Dosage: 3XWEEK
     Route: 065
     Dates: start: 20080701
  18. GABAPENTIN CAPSULES 300 MG [Suspect]
     Active Substance: GABAPENTIN
     Indication: NEUROPATHY PERIPHERAL
     Dosage: 4 DF, TWO TIMES A DAY
     Route: 048
     Dates: start: 2010
  19. PROVENTIL HFA                      /00139501/ [Concomitant]
     Indication: CHRONIC OBSTRUCTIVE PULMONARY DISEASE
     Dosage: 2 PUFFS X 3-4 A DAY
     Route: 065
     Dates: start: 20080701
  20. ADVAIR HFA [Concomitant]
     Active Substance: FLUTICASONE PROPIONATE\SALMETEROL XINAFOATE
     Indication: CHRONIC OBSTRUCTIVE PULMONARY DISEASE
     Dosage: 1 DF, EVERY OTHER DAY
     Route: 065
     Dates: start: 20080701
  21. BENADRYL [Concomitant]
     Active Substance: DIPHENHYDRAMINE HYDROCHLORIDE
     Indication: PRODUCT USED FOR UNKNOWN INDICATION
     Dosage: 1-2 DF, AS NECESSARY
     Route: 065
     Dates: start: 20080701
  22. CORTISONE [Concomitant]
     Active Substance: CORTISONE\HYDROCORTISONE
     Indication: ECZEMA
     Dosage: 3XWEEK
     Route: 065
     Dates: start: 20080701
  23. PREDNISONE. [Concomitant]
     Active Substance: PREDNISONE
     Indication: CHRONIC OBSTRUCTIVE PULMONARY DISEASE
     Dosage: 4 X 3 DAYS, 3 X 3 DAYS 2 X 3 DAYS AND 1 X 3 DAYS, AS NECESSARY
     Route: 065
     Dates: start: 20080701

REACTIONS (4)
  - Vision blurred [Recovered/Resolved]
  - Dysarthria [Recovered/Resolved]
  - Fall [Recovered/Resolved]
  - Gait disturbance [Recovered/Resolved]

NARRATIVE: CASE EVENT DATE: 20140620
